FAERS Safety Report 12788093 (Version 2)
Quarter: 2017Q4

REPORT INFORMATION
  Report Type: Spontaneous
  Country: US (occurrence: US)
  Receive Date: 20160928
  Receipt Date: 20171113
  Transmission Date: 20180320
  Serious: No
  Sender: FDA-Public Use
  Company Number: US-PFIZER INC-2016445237

PATIENT
  Sex: Female

DRUGS (7)
  1. HUMIRA [Suspect]
     Active Substance: ADALIMUMAB
     Dosage: UNK
  2. BACTRIM [Suspect]
     Active Substance: SULFAMETHOXAZOLE\TRIMETHOPRIM
     Dosage: UNK
  3. LAMICTAL [Suspect]
     Active Substance: LAMOTRIGINE
     Dosage: UNK
  4. LASIX [Suspect]
     Active Substance: FUROSEMIDE
     Dosage: UNK
  5. CODEINE [Suspect]
     Active Substance: CODEINE
     Dosage: UNK
  6. LOMOTIL [Suspect]
     Active Substance: ATROPINE SULFATE\DIPHENOXYLATE HYDROCHLORIDE
     Dosage: UNK
  7. ASPIRIN. [Suspect]
     Active Substance: ASPIRIN
     Dosage: UNK

REACTIONS (1)
  - Drug hypersensitivity [Unknown]
